FAERS Safety Report 16945247 (Version 1)
Quarter: 2019Q4

REPORT INFORMATION
  Report Type: Spontaneous
  Country: US (occurrence: US)
  Receive Date: 20191022
  Receipt Date: 20191022
  Transmission Date: 20200122
  Serious: No
  Sender: FDA-Public Use
  Company Number: US-KYOWAKIRIN-2019BKK016325

PATIENT

DRUGS (2)
  1. OPSITE [Suspect]
     Active Substance: POLYURETHANE
     Indication: PRODUCT USED FOR UNKNOWN INDICATION
     Dosage: UNK
     Route: 065
  2. SANCUSO [Suspect]
     Active Substance: GRANISETRON
     Indication: PRODUCT USED FOR UNKNOWN INDICATION
     Dosage: UNK
     Route: 061
     Dates: start: 20190907

REACTIONS (2)
  - Skin tightness [Unknown]
  - Application site irritation [Unknown]

NARRATIVE: CASE EVENT DATE: 2019
